FAERS Safety Report 6521484-9 (Version None)
Quarter: 2009Q4

REPORT INFORMATION
  Report Type: 
  Country: None (occurrence: None)
  Receive Date: 20091214
  Receipt Date: 20090624
  Transmission Date: 20100525
  Serious: Yes (Other)
  Sender: FDA-Public Use
  Company Number: 641071

PATIENT
  Age: 48 Year
  Sex: Female

DRUGS (12)
  1. PEGASYS [Suspect]
     Indication: HEPATITIS C
     Dosage: 180 UG 1 PER WEEK
     Dates: start: 20070101, end: 20080201
  2. COPEGUS [Suspect]
     Indication: HEPATITIS C
     Dates: start: 20070101, end: 20080201
  3. FISH OIL (FATTY ACIDS NOS) [Concomitant]
  4. TYLENOL [Concomitant]
  5. FLEXERIL [Concomitant]
  6. LIDOCAINE [Concomitant]
  7. ANEXSIA (HYDROCODONE BITARTRATE/PARACETAMOL) [Concomitant]
  8. XANAX [Concomitant]
  9. PROTONIX [Concomitant]
  10. NEURONTIN [Concomitant]
  11. SYNTHROID [Concomitant]
  12. INDERAL [Concomitant]

REACTIONS (10)
  - AUTOIMMUNE DISORDER [None]
  - CHEST PAIN [None]
  - FIBROMYALGIA [None]
  - HYPOTHYROIDISM [None]
  - IMPAIRED HEALING [None]
  - LEUKOPENIA [None]
  - PHARYNGITIS [None]
  - PLATELET COUNT DECREASED [None]
  - SLEEP DISORDER [None]
  - VISUAL IMPAIRMENT [None]
